FAERS Safety Report 9834063 (Version 1)
Quarter: 2014Q1

REPORT INFORMATION
  Report Type: Report from Study
  Country: DE (occurrence: DE)
  Receive Date: 20140122
  Receipt Date: 20140122
  Transmission Date: 20141002
  Serious: No
  Sender: FDA-Public Use
  Company Number: PHHY2014DE006695

PATIENT
  Sex: Female
  Weight: 102 kg

DRUGS (5)
  1. AMN107 [Suspect]
     Indication: CHRONIC MYELOID LEUKAEMIA
     Route: 048
  2. NEURONTIN [Concomitant]
     Dates: start: 20050822
  3. DUROGESIC [Concomitant]
     Dates: start: 20050309
  4. SIMVAHEXAL [Concomitant]
     Dates: start: 20081124
  5. NEOTRI [Concomitant]
     Dates: start: 20030422

REACTIONS (1)
  - Chills [Recovered/Resolved]
